FAERS Safety Report 4369678-5 (Version None)
Quarter: 2004Q2

REPORT INFORMATION
  Report Type: 
  Country: None (occurrence: None)
  Receive Date: 20040603
  Receipt Date: 20040526
  Transmission Date: 20050107
  Serious: Yes (Hospitalization)
  Sender: FDA-Public Use
  Company Number: FR-BRISTOL-MYERS SQUIBB COMPANY-12599387

PATIENT
  Age: 60 Year
  Sex: Female

DRUGS (3)
  1. GLUCOPHAGE [Suspect]
     Indication: DIABETES MELLITUS
     Route: 048
     Dates: end: 20040115
  2. AMAREL [Suspect]
     Indication: DIABETES MELLITUS
     Route: 048
     Dates: end: 20040115
  3. LASILIX [Suspect]
     Dosage: ON UNSPECIFIED DATE, DOSE WAS REDUCED TO 160 MILLIGRAMS ONCE DAILY
     Route: 048
     Dates: start: 20040121

REACTIONS (2)
  - HYPOGLYCAEMIA [None]
  - RENAL FAILURE ACUTE [None]
